FAERS Safety Report 8371528-7 (Version None)
Quarter: 2012Q2

REPORT INFORMATION
  Report Type: 
  Country: None (occurrence: None)
  Receive Date: 20120518
  Receipt Date: 20120514
  Transmission Date: 20120825
  Serious: Yes (Death)
  Sender: FDA-Public Use
  Company Number: AT-ASTRAZENECA-2012SE30954

PATIENT
  Age: 22 Year
  Sex: Male
  Weight: 127 kg

DRUGS (13)
  1. ASPIRIN [Concomitant]
     Dates: start: 20110929, end: 20111006
  2. FERRETAB [Concomitant]
     Dates: start: 20100101, end: 20111006
  3. MESALAMINE [Concomitant]
     Dates: start: 20110801, end: 20111006
  4. NOZINAN [Concomitant]
     Dates: start: 20111002, end: 20111006
  5. SEROQUEL [Suspect]
     Route: 048
     Dates: start: 20111002, end: 20111006
  6. EUTHYROX [Concomitant]
     Dates: start: 20100101, end: 20111006
  7. ASPIRIN [Concomitant]
     Dates: start: 20110926, end: 20110928
  8. ABILIFY [Concomitant]
     Dates: start: 20110920, end: 20110928
  9. LECICARBON [Concomitant]
     Dates: start: 20110901, end: 20111006
  10. CYMBALTA [Concomitant]
     Dates: start: 20110926, end: 20111006
  11. LOVENOX [Concomitant]
     Dates: start: 20110920, end: 20111006
  12. SEROQUEL [Suspect]
     Route: 048
     Dates: start: 20110928, end: 20111001
  13. LORAZEPAM [Concomitant]
     Dates: start: 20110929, end: 20111006

REACTIONS (1)
  - LEFT VENTRICULAR FAILURE [None]
